FAERS Safety Report 14300018 (Version 1)
Quarter: 2017Q4

REPORT INFORMATION
  Report Type: Spontaneous
  Country: US (occurrence: US)
  Receive Date: 20171219
  Receipt Date: 20171219
  Transmission Date: 20180321
  Serious: Yes (Death)
  Sender: FDA-Public Use
  Company Number: US-ROCHE-2042483

PATIENT
  Sex: Male

DRUGS (9)
  1. IBUPROFEN. [Concomitant]
     Active Substance: IBUPROFEN
  2. LOVASTATIN. [Concomitant]
     Active Substance: LOVASTATIN
  3. PRESERVISION AREDS [Concomitant]
     Active Substance: MINERALS\VITAMINS
  4. GLIMEPIRIDE. [Concomitant]
     Active Substance: GLIMEPIRIDE
  5. METFORMIN [Concomitant]
     Active Substance: METFORMIN HYDROCHLORIDE
     Route: 065
  6. ERIVEDGE [Suspect]
     Active Substance: VISMODEGIB
     Indication: BASAL CELL CARCINOMA
     Dosage: DAILY, ONGOING: UNKNOWN
     Route: 048
     Dates: start: 20170830
  7. XARELTO [Concomitant]
     Active Substance: RIVAROXABAN
  8. FUROSEMIDE. [Concomitant]
     Active Substance: FUROSEMIDE
  9. KLOR-CON [Concomitant]
     Active Substance: POTASSIUM CHLORIDE

REACTIONS (1)
  - Death [Fatal]
